FAERS Safety Report 13609317 (Version 1)
Quarter: 2017Q2

REPORT INFORMATION
  Report Type: Spontaneous
  Country: JP (occurrence: JP)
  Receive Date: 20170602
  Receipt Date: 20170602
  Transmission Date: 20170830
  Serious: Yes (Hospitalization)
  Sender: FDA-Public Use
  Company Number: JP-MYLANLABS-2017M1033274

PATIENT

DRUGS (4)
  1. EPIPEN [Suspect]
     Active Substance: EPINEPHRINE
     Dosage: UNK
     Dates: start: 2017
  2. EPIPEN [Suspect]
     Active Substance: EPINEPHRINE
     Indication: GENERAL PHYSICAL CONDITION ABNORMAL
     Dosage: UNK
     Dates: start: 20170318, end: 20170318
  3. EPIPEN [Suspect]
     Active Substance: EPINEPHRINE
     Dosage: UNK
     Dates: start: 20170319, end: 20170319
  4. EPIPEN [Suspect]
     Active Substance: EPINEPHRINE
     Dosage: UNK
     Dates: start: 20170421, end: 20170421

REACTIONS (3)
  - Blood pressure increased [Unknown]
  - Product use in unapproved indication [Unknown]
  - Palpitations [Unknown]

NARRATIVE: CASE EVENT DATE: 20170419
